FAERS Safety Report 9060547 (Version 1)
Quarter: 2013Q1

REPORT INFORMATION
  Report Type: Spontaneous
  Country: FR (occurrence: FR)
  Receive Date: 20130212
  Receipt Date: 20130212
  Transmission Date: 20140127
  Serious: Yes (Hospitalization)
  Sender: FDA-Public Use
  Company Number: FR-B.I. PHARMACEUTICALS,INC./RIDGEFIELD-2013-FF-00380FF

PATIENT
  Age: 78 None
  Sex: Female

DRUGS (6)
  1. CATAPRESSAN [Suspect]
     Dosage: 1 ANZ
     Route: 048
     Dates: end: 20121212
  2. BIPRETERAX [Suspect]
     Dosage: 1 ANZ
     Dates: end: 20121212
  3. CORTANCYL [Suspect]
     Dosage: 1 MG
     Route: 048
  4. KALEORID [Suspect]
     Dosage: 1 ANZ
     Route: 048
     Dates: end: 20121212
  5. CORDARONE [Concomitant]
  6. ISKEDYL [Concomitant]

REACTIONS (1)
  - Hypokalaemia [Recovered/Resolved]
